FAERS Safety Report 18957779 (Version 1)
Quarter: 2021Q1

REPORT INFORMATION
  Report Type: Spontaneous
  Country: US (occurrence: US)
  Receive Date: 20210302
  Receipt Date: 20210302
  Transmission Date: 20210420
  Serious: Yes (Hospitalization)
  Sender: FDA-Public Use
  Company Number: None

PATIENT
  Age: 2 Year
  Sex: Male
  Weight: 19 kg

DRUGS (7)
  1. CYCLOPHOSPHAMIDE 4000MG [Suspect]
     Active Substance: CYCLOPHOSPHAMIDE
     Dates: end: 20201226
  2. THIOTEPA 600MG [Suspect]
     Active Substance: THIOTEPA
     Dates: end: 20201223
  3. MESNA 7200MG [Suspect]
     Active Substance: MESNA
     Dates: start: 20201226
  4. MELPHALAN 120MG [Suspect]
     Active Substance: MELPHALAN
     Dates: end: 20210214
  5. ETOPOSIDE (VP?16) 560MG [Suspect]
     Active Substance: ETOPOSIDE
     Dates: end: 20210215
  6. CARBOPLATIN 800MG [Suspect]
     Active Substance: CARBOPLATIN
     Dates: end: 20210215
  7. G?CSF (FILGRASTIM, AMGEN) 1200MCG [Suspect]
     Active Substance: FILGRASTIM
     Dates: end: 20210223

REACTIONS (7)
  - Oxygen saturation decreased [None]
  - Mucosal inflammation [None]
  - Pyrexia [None]
  - Thrombosis [None]
  - Haematemesis [None]
  - Hypotension [None]
  - Gastrointestinal haemorrhage [None]

NARRATIVE: CASE EVENT DATE: 20210221
